FAERS Safety Report 17677291 (Version 1)
Quarter: 2020Q2

REPORT INFORMATION
  Report Type: Spontaneous
  Country: US (occurrence: US)
  Receive Date: 20200416
  Receipt Date: 20200416
  Transmission Date: 20200714
  Serious: No
  Sender: FDA-Public Use
  Company Number: US-PERRIGO-19US007043

PATIENT
  Age: 62 Year
  Sex: Female
  Weight: 61.22 kg

DRUGS (3)
  1. CLOBETASOL PROPIONATE. [Suspect]
     Active Substance: CLOBETASOL PROPIONATE
     Dosage: 1/2 TEASPOON, SINGLE
     Route: 061
     Dates: start: 20190604, end: 20190604
  2. CLOBETASOL PROPIONATE. [Suspect]
     Active Substance: CLOBETASOL PROPIONATE
     Dosage: 1/2 TEASPOON, SINGLE
     Route: 061
     Dates: start: 20190601, end: 20190601
  3. CLOBETASOL PROPIONATE. [Suspect]
     Active Substance: CLOBETASOL PROPIONATE
     Indication: SKIN EXFOLIATION
     Dosage: 1 APPLICATION, PRN
     Route: 061
     Dates: start: 2012, end: 20190531

REACTIONS (2)
  - Off label use [Recovered/Resolved]
  - Wrong technique in product usage process [Recovered/Resolved]

NARRATIVE: CASE EVENT DATE: 2012
